FAERS Safety Report 10760638 (Version 1)
Quarter: 2015Q1

REPORT INFORMATION
  Report Type: Spontaneous
  Country: BR (occurrence: BR)
  Receive Date: 20150204
  Receipt Date: 20150204
  Transmission Date: 20150721
  Serious: Yes (Hospitalization, Other)
  Sender: FDA-Public Use
  Company Number: BR-MERCK-1501BRA011352

PATIENT
  Sex: Female

DRUGS (2)
  1. MERCILON [Suspect]
     Active Substance: DESOGESTREL\ETHINYL ESTRADIOL
     Indication: CONTRACEPTION
     Dosage: UNK
     Route: 048
  2. ENBREL [Concomitant]
     Active Substance: ETANERCEPT
     Indication: PSORIATIC ARTHROPATHY
     Dosage: 50 MG, QW
     Dates: start: 20110425, end: 20140320

REACTIONS (8)
  - HELLP syndrome [Unknown]
  - Hypertension [Unknown]
  - Caesarean section [Recovered/Resolved]
  - Unintended pregnancy [Recovered/Resolved]
  - Transfusion [Unknown]
  - Psoriasis [Unknown]
  - Thrombocytopenia [Unknown]
  - Arthritis [Unknown]

NARRATIVE: CASE EVENT DATE: 20140326
